FAERS Safety Report 6537884-7 (Version None)
Quarter: 2010Q1

REPORT INFORMATION
  Report Type: 
  Country: None (occurrence: None)
  Receive Date: 20100114
  Receipt Date: 20091229
  Transmission Date: 20100710
  Serious: Yes (Hospitalization)
  Sender: FDA-Public Use
  Company Number: JP-SANOFI-AVENTIS-2009SA001468

PATIENT
  Age: 73 Year
  Sex: Male

DRUGS (13)
  1. INDAPAMIDE [Suspect]
     Indication: HYPERTENSION
     Route: 048
     Dates: start: 20090807, end: 20090904
  2. EPLERENONE [Suspect]
     Indication: DRUG USE FOR UNKNOWN INDICATION
     Route: 048
     Dates: end: 20090904
  3. ASPIRIN [Concomitant]
     Dates: end: 20090904
  4. OLMETEC [Concomitant]
     Dates: end: 20090904
  5. CALBLOCK [Concomitant]
     Dates: end: 20090904
  6. LASIX [Concomitant]
     Dates: end: 20090904
  7. ITAVASTATIN [Concomitant]
     Dates: end: 20090904
  8. WARFARIN SODIUM [Concomitant]
     Dates: end: 20090904
  9. NITOROL [Concomitant]
     Dates: end: 20090904
  10. PROMAC /MEX/ [Concomitant]
     Dates: end: 20090904
  11. URSO 250 [Concomitant]
  12. CEPHADOL [Concomitant]
     Dates: end: 20090904
  13. HALCION [Concomitant]
     Dates: end: 20090904

REACTIONS (4)
  - ALTERED STATE OF CONSCIOUSNESS [None]
  - BLOOD CREATINE PHOSPHOKINASE INCREASED [None]
  - HYPONATRAEMIA [None]
  - MUSCULOSKELETAL STIFFNESS [None]
